FAERS Safety Report 7053967-X (Version None)
Quarter: 2010Q4

REPORT INFORMATION
  Report Type: 
  Country: None (occurrence: None)
  Receive Date: 20101020
  Receipt Date: 20101011
  Transmission Date: 20110411
  Serious: Yes (Other)
  Sender: FDA-Public Use
  Company Number: US-SANOFI-AVENTIS-2010SA063497

PATIENT
  Age: 58 Year
  Sex: Female

DRUGS (5)
  1. LANTUS [Suspect]
     Indication: TYPE 2 DIABETES MELLITUS
     Dosage: DOSE:20 UNIT(S)
     Route: 058
  2. LANTUS [Suspect]
     Dosage: DOSE:40 UNIT(S)
     Route: 058
  3. OPTICLICK [Suspect]
     Indication: TYPE 2 DIABETES MELLITUS
  4. SYNTHROID [Suspect]
     Route: 065
  5. PREDNISONE [Concomitant]

REACTIONS (2)
  - ECZEMA [None]
  - THYROIDECTOMY [None]
